FAERS Safety Report 18319499 (Version 3)
Quarter: 2020Q4

REPORT INFORMATION
  Report Type: Spontaneous
  Country: CA (occurrence: CA)
  Receive Date: 20200928
  Receipt Date: 20201221
  Transmission Date: 20210113
  Serious: Yes (Other)
  Sender: FDA-Public Use
  Company Number: CA-CELLTRION INC.-2020CA023784

PATIENT

DRUGS (4)
  1. INFLECTRA [Suspect]
     Active Substance: INFLIXIMAB-DYYB
     Dosage: 700 MG EACH 8 WEEKS
     Route: 042
     Dates: start: 20200703
  2. INFLECTRA [Suspect]
     Active Substance: INFLIXIMAB-DYYB
     Dosage: 700 MG EACH 8 WEEKS
     Route: 042
     Dates: start: 20201127
  3. INFLECTRA [Suspect]
     Active Substance: INFLIXIMAB-DYYB
     Indication: COLITIS ULCERATIVE
     Dosage: 700 MG EACH 8 WEEKS
     Route: 042
     Dates: start: 20200430
  4. INFLECTRA [Suspect]
     Active Substance: INFLIXIMAB-DYYB
     Dosage: 700 MG EACH 8 WEEKS
     Route: 042
     Dates: start: 20200904

REACTIONS (5)
  - Eczema [Unknown]
  - Otitis externa [Recovered/Resolved]
  - Joint injury [Unknown]
  - Off label use [Unknown]
  - Gait inability [Unknown]

NARRATIVE: CASE EVENT DATE: 202006
